FAERS Safety Report 5912639-2 (Version None)
Quarter: 2008Q4

REPORT INFORMATION
  Report Type: 
  Country: None (occurrence: None)
  Receive Date: 20081008
  Receipt Date: 20080925
  Transmission Date: 20090506
  Serious: Yes (Hospitalization, Other)
  Sender: FDA-Public Use
  Company Number: US-ELI_LILLY_AND_COMPANY-US200809006010

PATIENT
  Sex: Female

DRUGS (8)
  1. FORTEO [Suspect]
     Indication: OSTEOPOROSIS
     Dosage: UNK, UNK
     Dates: start: 20080101, end: 20080101
  2. PREDNISONE TAB [Concomitant]
     Dosage: 2.5 MG, UNK
  3. PRILOSEC [Concomitant]
  4. LEXAPRO [Concomitant]
  5. OPTIPRANOLOL [Concomitant]
     Route: 047
  6. CITRACAL [Concomitant]
     Dosage: UNK, 3/D
  7. VITAMIN B-12 [Concomitant]
     Dosage: UNK, MONTHLY (1/M)
  8. IRON [Concomitant]
     Dosage: 900 MG, 3/D

REACTIONS (4)
  - ANAEMIA [None]
  - BLOOD IRON DECREASED [None]
  - HOSPITALISATION [None]
  - MUSCULAR WEAKNESS [None]
